FAERS Safety Report 19578487 (Version 7)
Quarter: 2022Q3

REPORT INFORMATION
  Report Type: Report from Study
  Country: US (occurrence: US)
  Receive Date: 20210720
  Receipt Date: 20220729
  Transmission Date: 20221027
  Serious: Yes (Other)
  Sender: FDA-Public Use
  Company Number: US-BOEHRINGERINGELHEIM-2020-BI-072571

PATIENT
  Age: 73 Year
  Sex: Male

DRUGS (3)
  1. OFEV [Suspect]
     Active Substance: NINTEDANIB
     Indication: Idiopathic pulmonary fibrosis
     Route: 048
     Dates: start: 20201208
  2. OFEV [Suspect]
     Active Substance: NINTEDANIB
     Dates: start: 20211014
  3. ALEVE PM [Suspect]
     Active Substance: DIPHENHYDRAMINE HYDROCHLORIDE\NAPROXEN SODIUM
     Indication: Product used for unknown indication

REACTIONS (18)
  - Gastric haemorrhage [Recovered/Resolved]
  - Rhinorrhoea [Not Recovered/Not Resolved]
  - Seasonal allergy [Not Recovered/Not Resolved]
  - Weight decreased [Recovering/Resolving]
  - Nasal congestion [Unknown]
  - Diarrhoea [Recovering/Resolving]
  - Faeces discoloured [Unknown]
  - Abdominal pain upper [Unknown]
  - Decreased appetite [Not Recovered/Not Resolved]
  - Cough [Recovering/Resolving]
  - Insomnia [Not Recovered/Not Resolved]
  - Dyspepsia [Unknown]
  - Taste disorder [Unknown]
  - Flatulence [Not Recovered/Not Resolved]
  - Dyspnoea [Unknown]
  - Secretion discharge [Not Recovered/Not Resolved]
  - Dyspepsia [Unknown]
  - Fatigue [Unknown]

NARRATIVE: CASE EVENT DATE: 20210125
